FAERS Safety Report 11562420 (Version 1)
Quarter: 2015Q3

REPORT INFORMATION
  Report Type: Spontaneous
  Country: US (occurrence: US)
  Receive Date: 20150916
  Receipt Date: 20150916
  Transmission Date: 20151125
  Serious: No
  Sender: FDA-Public Use
  Company Number: US-ELI_LILLY_AND_COMPANY-US200812002134

PATIENT
  Age: 49 Year
  Sex: Female

DRUGS (4)
  1. LEVOTHYROXINE. [Concomitant]
     Active Substance: LEVOTHYROXINE
     Indication: HYPOTHYROIDISM
     Dosage: 0.05 MG, DAILY (1/D)
     Dates: start: 200811
  2. RECLAST [Concomitant]
     Active Substance: ZOLEDRONIC ACID
     Dates: start: 200811
  3. FORTEO [Suspect]
     Active Substance: TERIPARATIDE
     Dosage: 20 UG, DAILY (1/D)
     Dates: start: 200811
  4. IRON [Concomitant]
     Active Substance: IRON
     Dates: start: 200812

REACTIONS (1)
  - Blood pressure diastolic increased [Recovered/Resolved]

NARRATIVE: CASE EVENT DATE: 200811
